FAERS Safety Report 9426251 (Version 1)
Quarter: 2013Q3

REPORT INFORMATION
  Report Type: Other
  Country: DE (occurrence: DE)
  Receive Date: 20130730
  Receipt Date: 20130730
  Transmission Date: 20140515
  Serious: Yes (Hospitalization)
  Sender: FDA-Public Use
  Company Number: DE-LUPIN PHARMACEUTICALS INC.-E2B_00001085

PATIENT
  Age: 59 Year
  Sex: Male
  Weight: 81 kg

DRUGS (4)
  1. LEVETIRACETAM 1000MG [Suspect]
     Indication: EPILEPSY
     Route: 048
     Dates: start: 20130413, end: 20130502
  2. ATACAND PLUS 32/25 MG [Suspect]
     Indication: HYPERTENSION
     Route: 048
  3. NEBIVOLOL 5 [Concomitant]
     Indication: HYPERTENSION
     Route: 048
  4. LERCANIDIPIN 20 [Concomitant]
     Indication: HYPERTENSION
     Route: 048

REACTIONS (1)
  - Hyponatraemia [Recovered/Resolved]
